FAERS Safety Report 12744045 (Version 3)
Quarter: 2017Q2

REPORT INFORMATION
  Report Type: Report from Study
  Country: None (occurrence: NZ)
  Receive Date: 20160914
  Receipt Date: 20170410
  Transmission Date: 20170830
  Serious: Yes (Hospitalization, Disabling, Other)
  Sender: FDA-Public Use
  Company Number: NZ-ABBVIE-16K-118-1724322-00

PATIENT
  Age: 20 Year
  Sex: Female
  Weight: 65 kg

DRUGS (6)
  1. HUMIRA [Suspect]
     Active Substance: ADALIMUMAB
     Indication: CROHN^S DISEASE
     Route: 058
     Dates: start: 2009
  2. DOXYCYCLINE. [Concomitant]
     Active Substance: DOXYCYCLINE
     Indication: ANORECTAL DISORDER
  3. HUMIRA [Suspect]
     Active Substance: ADALIMUMAB
     Route: 058
     Dates: start: 201507
  4. CITALOPRAM [Concomitant]
     Active Substance: CITALOPRAM HYDROBROMIDE
     Indication: DEPRESSION
     Route: 048
  5. ALLOPURINOL. [Concomitant]
     Active Substance: ALLOPURINOL
     Indication: PRODUCT USED FOR UNKNOWN INDICATION
  6. DOXYCYCLINE. [Concomitant]
     Active Substance: DOXYCYCLINE
     Indication: ANAL INFLAMMATION
     Route: 048

REACTIONS (15)
  - Enterocutaneous fistula [Unknown]
  - Crohn^s disease [Recovered/Resolved]
  - Stoma site inflammation [Unknown]
  - Device dislocation [Unknown]
  - Drug level decreased [Unknown]
  - Chills [Unknown]
  - Large intestinal ulcer [Unknown]
  - White blood cell count increased [Unknown]
  - Stoma site ulcer [Unknown]
  - C-reactive protein increased [Unknown]
  - Gastrointestinal wall thickening [Unknown]
  - Large intestine erosion [Unknown]
  - Colitis [Unknown]
  - Drug ineffective [Unknown]
  - Post procedural inflammation [Unknown]

NARRATIVE: CASE EVENT DATE: 201503
